FAERS Safety Report 18532990 (Version 3)
Quarter: 2022Q4

REPORT INFORMATION
  Report Type: Spontaneous
  Country: US (occurrence: US)
  Receive Date: 20201123
  Receipt Date: 20221027
  Transmission Date: 20230113
  Serious: Yes (Other)
  Sender: FDA-Public Use
  Company Number: US-PFIZER INC-2020460283

PATIENT
  Age: 61 Year
  Sex: Female
  Weight: 113.4 kg

DRUGS (2)
  1. SOMAVERT [Suspect]
     Active Substance: PEGVISOMANT
     Indication: Acromegaly
     Dosage: 20 MG, 1X/DAY
  2. SOMAVERT [Suspect]
     Active Substance: PEGVISOMANT
     Dosage: 20 MG
     Dates: start: 20220901, end: 20220921

REACTIONS (3)
  - COVID-19 [Recovering/Resolving]
  - Weight decreased [Unknown]
  - Product dose omission issue [Unknown]
